FAERS Safety Report 4607138-4 (Version None)
Quarter: 2005Q1

REPORT INFORMATION
  Report Type: 
  Country: None (occurrence: None)
  Receive Date: 20050310
  Receipt Date: 20050225
  Transmission Date: 20050727
  Serious: No
  Sender: FDA-Public Use
  Company Number: HQWYE737601MAR05

PATIENT
  Age: 34 Year
  Sex: Male
  Weight: 102.1 kg

DRUGS (11)
  1. RAPAMUNE [Suspect]
     Indication: PROPHYLAXIS AGAINST TRANSPLANT REJECTION
     Dosage: 9 MG 1X PER 1 DAY, ORAL
     Route: 048
     Dates: start: 20041218
  2. PROGRAF [Concomitant]
  3. PREDNISONE [Concomitant]
  4. RANIGIDINE (RANITIDINE) [Concomitant]
  5. TOPROL-XL [Concomitant]
  6. NORVASC [Concomitant]
  7. BACTRIM DS [Concomitant]
  8. ACCUPRIL [Concomitant]
  9. SODIUM BICARBONABE (SODIUM BICARBONATE) [Concomitant]
  10. LIPITOR [Concomitant]
  11. HYDROCHLOROTHIAZIDE [Concomitant]

REACTIONS (5)
  - BLOOD CREATININE DECREASED [None]
  - BLOOD GLUCOSE INCREASED [None]
  - IMMUNOSUPPRESSANT DRUG LEVEL DECREASED [None]
  - INFLUENZA LIKE ILLNESS [None]
  - KIDNEY TRANSPLANT REJECTION [None]
